FAERS Safety Report 18074336 (Version 2)
Quarter: 2020Q3

REPORT INFORMATION
  Report Type: Spontaneous
  Country: MA (occurrence: MA)
  Receive Date: 20200727
  Receipt Date: 20200812
  Transmission Date: 20201103
  Serious: Yes (Hospitalization, Other)
  Sender: FDA-Public Use
  Company Number: MA-MACLEODS PHARMACEUTICALS US LTD-MAC2020027427

PATIENT

DRUGS (1)
  1. METFORMIN [Suspect]
     Active Substance: METFORMIN HYDROCHLORIDE
     Indication: TYPE 2 DIABETES MELLITUS
     Dosage: 1 DOSAGE FORM, QD, MEDICATION ERROR
     Route: 065

REACTIONS (5)
  - Dysarthria [Recovering/Resolving]
  - Accidental exposure to product [Recovering/Resolving]
  - Toxic encephalopathy [Recovering/Resolving]
  - Akinesia [Recovering/Resolving]
  - Medication error [Recovering/Resolving]
